FAERS Safety Report 15640343 (Version 1)
Quarter: 2018Q4

REPORT INFORMATION
  Report Type: Spontaneous
  Country: KW (occurrence: KW)
  Receive Date: 20181120
  Receipt Date: 20181120
  Transmission Date: 20190205
  Serious: Yes (Life-Threatening, Other)
  Sender: FDA-Public Use
  Company Number: KW-BAYER-2018-211190

PATIENT
  Age: 66 Year
  Sex: Male

DRUGS (1)
  1. ACETYLSALICYLIC ACID({=100 MG) [Suspect]
     Active Substance: ASPIRIN

REACTIONS (5)
  - Prostatic haemorrhage [None]
  - Urethral haemorrhage [None]
  - Hypotension [None]
  - Tachycardia [None]
  - Haematuria [None]
